FAERS Safety Report 4680126-8 (Version None)
Quarter: 2005Q2

REPORT INFORMATION
  Report Type: 
  Country: None (occurrence: None)
  Receive Date: 20050531
  Receipt Date: 20050512
  Transmission Date: 20051028
  Serious: Yes (Hospitalization, Other)
  Sender: FDA-Public Use
  Company Number: 175349

PATIENT
  Age: 54 Year
  Sex: Female

DRUGS (2)
  1. AVONEX [Suspect]
     Indication: MULTIPLE SCLEROSIS
     Dosage: 30 UG; QW; IM
     Route: 030
     Dates: start: 20010216
  2. PARACETAMOL [Concomitant]

REACTIONS (4)
  - LUNG NEOPLASM MALIGNANT [None]
  - METASTASES TO BREAST [None]
  - METASTASES TO NECK [None]
  - THYROID CYST [None]
